FAERS Safety Report 9877107 (Version 1)
Quarter: 2014Q1

REPORT INFORMATION
  Report Type: Spontaneous
  Country: GB (occurrence: None)
  Receive Date: 20140204
  Receipt Date: 20140204
  Transmission Date: 20141002
  Serious: Yes (Other)
  Sender: FDA-Public Use
  Company Number: AUR-APL-2014-00714

PATIENT
  Age: 57 Year
  Sex: Male

DRUGS (6)
  1. BISOPROLOL [Suspect]
     Indication: CARDIAC FAILURE
     Dosage: MG, 1 IN 1 D) ORAL
     Route: 048
     Dates: start: 20131122, end: 20140106
  2. ASPIRIN (ACETYLSALICYLIC ACID) [Concomitant]
  3. FUROSEMIDE (FUROSEMIDE) [Concomitant]
  4. LANSOPRAZOLE (LANSOPRAZOLE) [Concomitant]
  5. LOSARTAN(LOSARTAN) [Concomitant]
  6. SIMVASTATIN (SIMVASTATIN) [Concomitant]

REACTIONS (4)
  - Mouth ulceration [None]
  - Penis disorder [None]
  - Skin fissures [None]
  - Skin tightness [None]
